FAERS Safety Report 6645178-4 (Version None)
Quarter: 2010Q1

REPORT INFORMATION
  Report Type: 
  Country: None (occurrence: None)
  Receive Date: 20100322
  Receipt Date: 20100312
  Transmission Date: 20100710
  Serious: Yes (Other)
  Sender: FDA-Public Use
  Company Number: GB-ABBOTT-09P-167-0571814-00

PATIENT

DRUGS (3)
  1. EPILIM CHRONO TABLETS [Suspect]
     Indication: EPILEPSY
     Dosage: EXTENDED RELEASE
     Route: 048
     Dates: start: 20090428
  2. EPILIM CHRONO TABLETS [Suspect]
  3. SODIUM VALPROATE [Suspect]
     Indication: EPILEPSY
     Route: 048
     Dates: start: 20090101, end: 20090428

REACTIONS (2)
  - CONVULSION [None]
  - PRODUCT SUBSTITUTION ISSUE [None]
